FAERS Safety Report 4954448-7 (Version None)
Quarter: 2006Q1

REPORT INFORMATION
  Report Type: 
  Country: None (occurrence: None)
  Receive Date: 20060322
  Receipt Date: 20060310
  Transmission Date: 20060701
  Serious: Yes (Hospitalization, Other)
  Sender: FDA-Public Use
  Company Number: 220512

PATIENT
  Age: 52 Year
  Sex: Female
  Weight: 57 kg

DRUGS (9)
  1. MABTHERA(RITUXIMAB) CONC FOR SOLUTION FOR INFUSION [Suspect]
     Indication: WALDENSTROM'S MACROGLOBULINAEMIA
     Dosage: INTRAVENOUS
     Route: 042
     Dates: start: 20050301, end: 20050601
  2. CYCLOPHOSPHAMIDE [Concomitant]
  3. FLUDARABINE [Concomitant]
  4. CORTICOID (CORTICOSTEROID NOS) [Concomitant]
  5. ZELITREX (VALACICLOVIR) [Concomitant]
  6. CONDROSULF (CHONDROITIN SULFATE) [Concomitant]
  7. OROCAL (CALCIUM CARBONATE) [Concomitant]
  8. DOLIPRANE (ACETAMINOPHEN) [Concomitant]
  9. PENTACARINATE (PENTAMIDINE) [Concomitant]

REACTIONS (9)
  - ARTHRALGIA [None]
  - CHEST X-RAY ABNORMAL [None]
  - COUGH [None]
  - DRUG TOXICITY [None]
  - HAEMOGLOBIN DECREASED [None]
  - LUNG DISORDER [None]
  - NEUTROPENIA [None]
  - POLYARTHRITIS [None]
  - VIRAL INFECTION [None]
